FAERS Safety Report 6862832-X (Version None)
Quarter: 2010Q3

REPORT INFORMATION
  Report Type: 
  Country: None (occurrence: None)
  Receive Date: 20100721
  Receipt Date: 20100630
  Transmission Date: 20110219
  Serious: Yes (Hospitalization)
  Sender: FDA-Public Use
  Company Number: A0865414A

PATIENT
  Age: 72 Year
  Sex: Male
  Weight: 86.4 kg

DRUGS (5)
  1. AVANDIA [Suspect]
     Indication: TYPE 2 DIABETES MELLITUS
     Dosage: 4MG PER DAY
     Dates: start: 20041201, end: 20070801
  2. AVANDAMET [Suspect]
     Indication: TYPE 2 DIABETES MELLITUS
     Dosage: 1TAB PER DAY
     Dates: start: 20030901, end: 20041201
  3. DIOVAN [Concomitant]
  4. NIFEDIPINE [Concomitant]
  5. PROTONIX [Concomitant]

REACTIONS (13)
  - AORTIC ANEURYSM [None]
  - AORTIC DISSECTION [None]
  - ATELECTASIS [None]
  - ATRIAL FIBRILLATION [None]
  - CARDIAC FAILURE CONGESTIVE [None]
  - CAROTID ARTERY DISEASE [None]
  - CELLULITIS [None]
  - CORONARY ARTERY DISEASE [None]
  - LABILE HYPERTENSION [None]
  - MYOCARDIAL ISCHAEMIA [None]
  - POST PROCEDURAL INFECTION [None]
  - SICK SINUS SYNDROME [None]
  - SYNCOPE [None]
